FAERS Safety Report 5722189-4 (Version None)
Quarter: 2008Q2

REPORT INFORMATION
  Report Type: 
  Country: None (occurrence: None)
  Receive Date: 20080429
  Receipt Date: 20080417
  Transmission Date: 20081010
  Serious: Yes (Other)
  Sender: FDA-Public Use
  Company Number: US-ELI_LILLY_AND_COMPANY-US200804004658

PATIENT
  Age: 62 Year
  Sex: Female

DRUGS (3)
  1. EVISTA [Suspect]
     Dosage: 60 MG, UNK
     Dates: start: 20070401
  2. PROTONIX [Concomitant]
  3. ATENOLOL [Concomitant]

REACTIONS (2)
  - DYSPHAGIA [None]
  - NERVE INJURY [None]
